FAERS Safety Report 5935808-4 (Version None)
Quarter: 2008Q4

REPORT INFORMATION
  Report Type: 
  Country: None (occurrence: None)
  Receive Date: 20081030
  Receipt Date: 20081022
  Transmission Date: 20090506
  Serious: Yes (Hospitalization)
  Sender: FDA-Public Use
  Company Number: PHHY2008MX25837

PATIENT
  Age: 14 Year
  Sex: Female

DRUGS (2)
  1. TRILEPTAL / GP 47680 / TRI 476B [Suspect]
     Dosage: 15 ML, QD
     Dates: start: 20061101
  2. FRISIUM [Concomitant]
     Dosage: 1/ 2 TABLET TID

REACTIONS (2)
  - GASTRIC DISORDER [None]
  - GASTROSTOMY [None]
